FAERS Safety Report 21171082 (Version 1)
Quarter: 2022Q3

REPORT INFORMATION
  Report Type: Spontaneous
  Country: CA (occurrence: None)
  Receive Date: 20220804
  Receipt Date: 20220804
  Transmission Date: 20221027
  Serious: Yes (Hospitalization, Other)
  Sender: FDA-Public Use
  Company Number: CA-PFIZER INC-202201028419

PATIENT
  Age: 80 Year
  Sex: Male

DRUGS (1)
  1. METHOTREXATE [Suspect]
     Active Substance: METHOTREXATE
     Indication: Psoriasis
     Dosage: 20 MG, 1 EVERY 1 WEEKS
     Route: 065

REACTIONS (6)
  - Mouth ulceration [Recovered/Resolved]
  - Mucosal ulceration [Recovered/Resolved]
  - Nasal mucosal ulcer [Recovered/Resolved]
  - Pancytopenia [Recovered/Resolved]
  - Pharyngeal ulceration [Recovered/Resolved]
  - Transfusion [Recovered/Resolved]
